FAERS Safety Report 10652564 (Version 3)
Quarter: 2015Q1

REPORT INFORMATION
  Report Type: Spontaneous
  Country: US (occurrence: US)
  Receive Date: 20141215
  Receipt Date: 20150330
  Transmission Date: 20150720
  Serious: Yes (Hospitalization, Other)
  Sender: FDA-Public Use
  Company Number: US-BAYER-2014-183089

PATIENT
  Age: 32 Year
  Sex: Female
  Weight: 77.98 kg

DRUGS (3)
  1. MIRENA [Suspect]
     Active Substance: LEVONORGESTREL
     Indication: CONTRACEPTION
     Dosage: 20 MCG/24HR, CONT
     Route: 015
     Dates: start: 20070913, end: 20081128
  2. MOTRIN [Concomitant]
     Active Substance: IBUPROFEN
  3. SYNTHROID [Concomitant]
     Active Substance: LEVOTHYROXINE SODIUM

REACTIONS (7)
  - Injury [None]
  - Drug ineffective [None]
  - Pain [None]
  - Uterine perforation [None]
  - Pregnancy with contraceptive device [None]
  - Emotional distress [None]
  - Abortion spontaneous [None]

NARRATIVE: CASE EVENT DATE: 200811
